FAERS Safety Report 19027353 (Version 5)
Quarter: 2021Q4

REPORT INFORMATION
  Report Type: Spontaneous
  Country: US (occurrence: US)
  Receive Date: 20210318
  Receipt Date: 20211220
  Transmission Date: 20220303
  Serious: Yes (Hospitalization, Other)
  Sender: FDA-Public Use
  Company Number: US-PFIZER INC-2021284400

PATIENT
  Age: 72 Year
  Sex: Female

DRUGS (1)
  1. IBRANCE [Suspect]
     Active Substance: PALBOCICLIB
     Dosage: 125 MG, UNK

REACTIONS (9)
  - Urinary tract infection [Unknown]
  - Sepsis [Unknown]
  - Stress [Unknown]
  - Myalgia [Unknown]
  - Arthralgia [Unknown]
  - Sinusitis [Unknown]
  - Chest pain [Unknown]
  - Product dose omission issue [Unknown]
  - Extra dose administered [Unknown]
